FAERS Safety Report 7405508-2 (Version None)
Quarter: 2011Q2

REPORT INFORMATION
  Report Type: 
  Country: None (occurrence: None)
  Receive Date: 20110411
  Receipt Date: 20110405
  Transmission Date: 20111010
  Serious: Yes (Life-Threatening, Hospitalization)
  Sender: FDA-Public Use
  Company Number: AU-AMGEN-AUSSP2011018142

PATIENT
  Age: 49 Year
  Sex: Female

DRUGS (4)
  1. ADRIAMYCIN PFS [Suspect]
  2. CYCLOPHOSPHAMIDE [Suspect]
  3. DOCETAXEL [Suspect]
     Dosage: 120 MG, UNK
     Route: 042
     Dates: start: 20101124
  4. NEULASTA [Suspect]
     Indication: CHEMOTHERAPY

REACTIONS (2)
  - NEUTROPENIC SEPSIS [None]
  - DRUG INEFFECTIVE [None]
